FAERS Safety Report 8826223 (Version 1)
Quarter: 2012Q4

REPORT INFORMATION
  Report Type: Report from Study
  Country: FR (occurrence: FR)
  Receive Date: 20121005
  Receipt Date: 20121005
  Transmission Date: 20130627
  Serious: Yes (Hospitalization)
  Sender: FDA-Public Use
  Company Number: FR-ROCHE-1137250

PATIENT
  Sex: Female
  Weight: 104 kg

DRUGS (5)
  1. ROACTEMRA [Suspect]
     Indication: RHEUMATOID ARTHRITIS
     Route: 065
     Dates: start: 20100727, end: 20101221
  2. ROACTEMRA [Suspect]
     Route: 065
     Dates: start: 20101221, end: 20101221
  3. CORTANCYL [Concomitant]
     Route: 065
     Dates: start: 200106
  4. CORTANCYL [Concomitant]
     Route: 065
     Dates: start: 200106
  5. METHOTREXATE [Concomitant]

REACTIONS (3)
  - Bronchopneumonia [Unknown]
  - Ventricular tachycardia [Not Recovered/Not Resolved]
  - Urinary tract infection [Recovered/Resolved]
